FAERS Safety Report 14298880 (Version 1)
Quarter: 2017Q4

REPORT INFORMATION
  Report Type: Spontaneous
  Country: US (occurrence: US)
  Receive Date: 20171216
  Receipt Date: 20171216
  Transmission Date: 20180321
  Serious: Yes (Hospitalization)
  Sender: FDA-Public Use
  Company Number: None

PATIENT
  Age: 91 Year
  Sex: Male

DRUGS (7)
  1. PROCRIT [Suspect]
     Active Substance: ERYTHROPOIETIN
     Indication: ANAEMIA
     Dosage: 1 ML EVERY MONTH UNDER THE SKIN
     Route: 058
     Dates: start: 20171024
  2. FINASTERIDE. [Concomitant]
     Active Substance: FINASTERIDE
  3. LATANOPROST. [Concomitant]
     Active Substance: LATANOPROST
  4. PROCRIT [Suspect]
     Active Substance: ERYTHROPOIETIN
     Indication: CHRONIC KIDNEY DISEASE
     Dosage: 1 ML EVERY MONTH UNDER THE SKIN
     Route: 058
     Dates: start: 20171024
  5. METOPROLOL TARTRATE. [Concomitant]
     Active Substance: METOPROLOL TARTRATE
  6. LEVOBUNOLOL [Concomitant]
     Active Substance: LEVOBUNOLOL
  7. LEVOTHYROXIN [Concomitant]
     Active Substance: LEVOTHYROXINE

REACTIONS (3)
  - Urinary tract infection [None]
  - Cardiac flutter [None]
  - Prostatic haemorrhage [None]

NARRATIVE: CASE EVENT DATE: 20171209
